FAERS Safety Report 8055315-5 (Version None)
Quarter: 2012Q1

REPORT INFORMATION
  Report Type: 
  Country: None (occurrence: None)
  Receive Date: 20120119
  Receipt Date: 20120113
  Transmission Date: 20120608
  Serious: Yes (Other)
  Sender: FDA-Public Use
  Company Number: GB-PFIZER INC-2012011566

PATIENT

DRUGS (1)
  1. ZYVOX [Suspect]

REACTIONS (1)
  - BONE MARROW FAILURE [None]
